FAERS Safety Report 12517685 (Version 1)
Quarter: 2016Q2

REPORT INFORMATION
  Report Type: Spontaneous
  Country: US (occurrence: US)
  Receive Date: 20160630
  Receipt Date: 20160630
  Transmission Date: 20160815
  Serious: No
  Sender: FDA-Public Use
  Company Number: US-ASTRAZENECA-2016SE69905

PATIENT
  Sex: Male

DRUGS (1)
  1. PRILOSEC OTC [Suspect]
     Active Substance: OMEPRAZOLE MAGNESIUM
     Indication: DYSPEPSIA
     Dosage: SEVERAL YEARS, FREQUENCY UNKNOWN
     Route: 048

REACTIONS (3)
  - Feeling abnormal [Recovered/Resolved]
  - Arthropathy [Recovered/Resolved]
  - Blood pressure increased [Recovered/Resolved]
